FAERS Safety Report 14882001 (Version 1)
Quarter: 2018Q2

REPORT INFORMATION
  Report Type: Spontaneous
  Country: US (occurrence: US)
  Receive Date: 20180425
  Receipt Date: 20180425
  Transmission Date: 20180711
  Serious: No
  Sender: FDA-Public Use
  Company Number: None

PATIENT
  Age: 27 Year
  Sex: Female
  Weight: 64.8 kg

DRUGS (3)
  1. DOCUSATE 100 MG [Concomitant]
     Dates: start: 20180418, end: 20180424
  2. CIPROFLOXACIN. [Concomitant]
     Active Substance: CIPROFLOXACIN
     Dates: start: 20180418, end: 20180422
  3. OLANZAPINE. [Suspect]
     Active Substance: OLANZAPINE
     Indication: PSYCHOTIC DISORDER
     Route: 048

REACTIONS (3)
  - Restlessness [None]
  - Dizziness [None]
  - Agitation [None]

NARRATIVE: CASE EVENT DATE: 20180418
